FAERS Safety Report 4289862-9 (Version None)
Quarter: 2004Q1

REPORT INFORMATION
  Report Type: 
  Country: None (occurrence: None)
  Receive Date: 20040209
  Receipt Date: 20030725
  Transmission Date: 20041129
  Serious: No
  Sender: FDA-Public Use
  Company Number: US-GLAXOSMITHKLINE-A0418236A

PATIENT
  Age: 6 Year
  Sex: Female
  Weight: 23.6 kg

DRUGS (1)
  1. PAXIL [Suspect]
     Indication: ANXIETY
     Dosage: 1.5TSP PER DAY
     Route: 048

REACTIONS (2)
  - HYPERTROPHY BREAST [None]
  - PRECOCIOUS PUBERTY [None]
